FAERS Safety Report 10922329 (Version 2)
Quarter: 2015Q3

REPORT INFORMATION
  Report Type: Report from Study
  Country: AU (occurrence: AU)
  Receive Date: 20150317
  Receipt Date: 20150729
  Transmission Date: 20151125
  Serious: Yes (Death, Hospitalization)
  Sender: FDA-Public Use
  Company Number: AU-INCYTE CORPORATION-2015IN001047

PATIENT
  Age: 85 Year
  Sex: Male

DRUGS (1)
  1. JAKAFI [Suspect]
     Active Substance: RUXOLITINIB
     Dosage: 15 MG, BID
     Route: 065
     Dates: start: 20140313

REACTIONS (5)
  - Death [Fatal]
  - Dyspnoea [Unknown]
  - Hepatic encephalopathy [Unknown]
  - Cardiac failure congestive [Unknown]
  - Renal impairment [Unknown]

NARRATIVE: CASE EVENT DATE: 20140814
